FAERS Safety Report 23130059 (Version 1)
Quarter: 2023Q4

REPORT INFORMATION
  Report Type: Spontaneous
  Country: AR (occurrence: AR)
  Receive Date: 20231031
  Receipt Date: 20231031
  Transmission Date: 20240110
  Serious: Yes (Other)
  Sender: FDA-Public Use
  Company Number: AR-SANOFI-AVENTIS R+D-2023SA333108

PATIENT
  Sex: Male

DRUGS (4)
  1. LEFLUNOMIDE [Suspect]
     Active Substance: LEFLUNOMIDE
  2. HYDROXYCHLOROQUINE [Suspect]
     Active Substance: HYDROXYCHLOROQUINE
     Dosage: UNK
  3. METHOTREXATE [Suspect]
     Active Substance: METHOTREXATE
     Dosage: UNK
  4. NINTEDANIB [Suspect]
     Active Substance: NINTEDANIB

REACTIONS (3)
  - Hepatotoxicity [Unknown]
  - Drug intolerance [Unknown]
  - Ocular toxicity [Unknown]
